FAERS Safety Report 8537080-8 (Version None)
Quarter: 2012Q3

REPORT INFORMATION
  Report Type: 
  Country: None (occurrence: None)
  Receive Date: 20120725
  Receipt Date: 20120717
  Transmission Date: 20120928
  Serious: Yes (Other)
  Sender: FDA-Public Use
  Company Number: US-FRI-1000037168

PATIENT
  Age: 53 Year
  Sex: Female
  Weight: 110.2 kg

DRUGS (6)
  1. THYROID TAB [Suspect]
     Dosage: 120 MG
     Route: 048
     Dates: start: 20120701
  2. VICODIN [Concomitant]
  3. DALMANE [Concomitant]
     Indication: INSOMNIA
  4. THYROID TAB [Suspect]
     Indication: HYPOTHYROIDISM
     Dosage: 180 MG
     Route: 048
     Dates: start: 19800101, end: 20110101
  5. SOMA [Concomitant]
  6. THYROID TAB [Suspect]
     Dosage: 180 MG
     Route: 048
     Dates: start: 20110101, end: 20120701

REACTIONS (13)
  - ONYCHOCLASIS [None]
  - WEIGHT INCREASED [None]
  - SWELLING [None]
  - VISUAL IMPAIRMENT [None]
  - MALAISE [None]
  - BLOOD THYROID STIMULATING HORMONE DECREASED [None]
  - WEIGHT DECREASED [None]
  - HYPERHIDROSIS [None]
  - SOMNOLENCE [None]
  - DYSPNOEA [None]
  - FATIGUE [None]
  - PALPITATIONS [None]
  - CHEST PAIN [None]
